FAERS Safety Report 10055751 (Version 1)
Quarter: 2014Q2

REPORT INFORMATION
  Report Type: Spontaneous
  Country: US (occurrence: None)
  Receive Date: 20140402
  Receipt Date: 20140402
  Transmission Date: 20141212
  Serious: Yes (Hospitalization)
  Sender: FDA-Public Use
  Company Number: None

PATIENT
  Age: 71 Year
  Sex: Male
  Weight: 145 kg

DRUGS (2)
  1. RIVAROXABAN [Suspect]
     Indication: ATRIAL FIBRILLATION
     Dosage: 1 TAB, QD, ORAL
     Route: 048
     Dates: start: 20140117, end: 20140120
  2. ENOXAPARIN [Suspect]
     Indication: ATRIAL FIBRILLATION
     Dosage: 1 INJECTION, BID, SUBCUTANEOUS
     Route: 058
     Dates: end: 20140116

REACTIONS (3)
  - Cellulitis [None]
  - Abdominal wall haematoma [None]
  - Cellulitis [None]
